FAERS Safety Report 7997478-3 (Version None)
Quarter: 2011Q4

REPORT INFORMATION
  Report Type: 
  Country: None (occurrence: None)
  Receive Date: 20111221
  Receipt Date: 20111221
  Transmission Date: 20120403
  Serious: Yes (Other)
  Sender: FDA-Public Use
  Company Number: None

PATIENT
  Age: 69 Year
  Sex: Female

DRUGS (2)
  1. SYNTHROID [Concomitant]
     Route: 048
  2. ULTRAVIST 150 [Suspect]
     Indication: POSITRON EMISSION TOMOGRAM
     Dosage: 80 ML
     Route: 042
     Dates: start: 20111205, end: 20111205

REACTIONS (7)
  - DYSPNOEA [None]
  - CHEST PAIN [None]
  - BLOOD PRESSURE DECREASED [None]
  - NAUSEA [None]
  - DIZZINESS [None]
  - CONTRAST MEDIA REACTION [None]
  - ABDOMINAL DISCOMFORT [None]
